FAERS Safety Report 8300847-5 (Version None)
Quarter: 2012Q2

REPORT INFORMATION
  Report Type: 
  Country: None (occurrence: None)
  Receive Date: 20120420
  Receipt Date: 20120416
  Transmission Date: 20120825
  Serious: No
  Sender: FDA-Public Use
  Company Number: US-B.I. PHARMACEUTICALS,INC./RIDGEFIELD-2012-BP-02797BP

PATIENT
  Sex: Female

DRUGS (2)
  1. CATAPRES-TTS-1 [Suspect]
     Indication: HYPERTENSION
     Dosage: 0.2 MG
     Route: 061
  2. ATENOLOL [Concomitant]
     Indication: HYPERTENSION
     Route: 048

REACTIONS (5)
  - HYPERTENSION [None]
  - CONDITION AGGRAVATED [None]
  - BLOOD PRESSURE INCREASED [None]
  - HEADACHE [None]
  - BLOOD PRESSURE INADEQUATELY CONTROLLED [None]
